FAERS Safety Report 7197634-0 (Version None)
Quarter: 2010Q4

REPORT INFORMATION
  Report Type: 
  Country: None (occurrence: None)
  Receive Date: 20101227
  Receipt Date: 20101220
  Transmission Date: 20110411
  Serious: Yes (Other)
  Sender: FDA-Public Use
  Company Number: DE-PFIZER INC-2010159943

PATIENT
  Age: 51 Year
  Sex: Female
  Weight: 65 kg

DRUGS (1)
  1. CLINDAMYCIN HCL [Suspect]
     Indication: OSTEOMYELITIS
     Dosage: 1800 IU, DAILY
     Route: 048
     Dates: start: 20100901

REACTIONS (4)
  - ABSCESS [None]
  - DRUG INEFFECTIVE [None]
  - NEURALGIA [None]
  - SALIVARY GLAND SCAN ABNORMAL [None]
